FAERS Safety Report 9282538 (Version 1)
Quarter: 2013Q2

REPORT INFORMATION
  Report Type: Spontaneous
  Country: US (occurrence: None)
  Receive Date: 20130509
  Receipt Date: 20130509
  Transmission Date: 20140414
  Serious: No
  Sender: FDA-Public Use
  Company Number: None

PATIENT
  Age: 55 Year
  Sex: Female

DRUGS (1)
  1. STRATTERA [Suspect]
     Indication: DRUG-INDUCED LIVER INJURY
     Dates: start: 2007, end: 20110211

REACTIONS (10)
  - Nausea [None]
  - Fatigue [None]
  - Night sweats [None]
  - Pruritus [None]
  - Arthralgia [None]
  - Aspartate aminotransferase increased [None]
  - Alanine aminotransferase increased [None]
  - Blood bilirubin increased [None]
  - Food aversion [None]
  - Vitamin D deficiency [None]
